FAERS Safety Report 7519263-9 (Version None)
Quarter: 2011Q2

REPORT INFORMATION
  Report Type: 
  Country: None (occurrence: None)
  Receive Date: 20110602
  Receipt Date: 20110524
  Transmission Date: 20111010
  Serious: Yes (Hospitalization)
  Sender: FDA-Public Use
  Company Number: BR-ASTRAZENECA-2011SE31987

PATIENT
  Age: 52 Year
  Sex: Female
  Weight: 62 kg

DRUGS (9)
  1. SEROQUEL [Suspect]
     Indication: SCHIZOPHRENIA
     Route: 048
     Dates: start: 20050101
  2. SEROQUEL [Suspect]
     Route: 048
  3. ASPIRIN [Concomitant]
  4. VASTAREL [Concomitant]
  5. DONAREN [Concomitant]
  6. SEROQUEL [Suspect]
     Route: 048
  7. CLOPIDOGREL [Concomitant]
  8. SULPAN [Concomitant]
     Indication: URINARY INCONTINENCE
     Dates: start: 20110101
  9. LIPITOR [Concomitant]

REACTIONS (7)
  - INSOMNIA [None]
  - CATHETERISATION CARDIAC [None]
  - DEVICE OCCLUSION [None]
  - CORONARY ARTERY INSUFFICIENCY [None]
  - STENT PLACEMENT [None]
  - LETHARGY [None]
  - RESTLESSNESS [None]
